FAERS Safety Report 7984159-5 (Version None)
Quarter: 2011Q4

REPORT INFORMATION
  Report Type: 
  Country: None (occurrence: None)
  Receive Date: 20111214
  Receipt Date: 20111128
  Transmission Date: 20120403
  Serious: Yes (Other)
  Sender: FDA-Public Use
  Company Number: 2011P1013476

PATIENT
  Age: 70 Year
  Sex: Female

DRUGS (8)
  1. SIMVASTATIN [Concomitant]
  2. DOXYCYCLINE [Suspect]
     Indication: ERYTHEMA MIGRANS
     Dosage: 100 MG, BID
  3. AMLODIPINE [Concomitant]
  4. LISINOPRIL PLUS  HYDROCHLOROTHIAZIDE [Concomitant]
  5. METFORMIN HCL [Concomitant]
  6. MOXONIDIN [Concomitant]
  7. ACETYLSALICYLIC ACID SRT [Concomitant]
  8. BISOPROLOL FUMARATE [Concomitant]

REACTIONS (2)
  - RASH ERYTHEMATOUS [None]
  - DERMATITIS EXFOLIATIVE [None]
